FAERS Safety Report 21402352 (Version 2)
Quarter: 2022Q4

REPORT INFORMATION
  Report Type: Other
  Country: JP (occurrence: JP)
  Receive Date: 20221003
  Receipt Date: 20221018
  Transmission Date: 20230113
  Serious: Yes (Hospitalization, Other)
  Sender: FDA-Public Use
  Company Number: JP-CHUGAI-2022037730

PATIENT
  Age: 78 Year
  Sex: Male
  Weight: 70.4 kg

DRUGS (3)
  1. ATEZOLIZUMAB [Suspect]
     Active Substance: ATEZOLIZUMAB
     Indication: Lung adenocarcinoma
     Dosage: MOST RECENT DOSE OF ATEZOLIZUMAB: 04/APR/2022
     Route: 041
     Dates: start: 20220119, end: 20220404
  2. CARBOPLATIN [Suspect]
     Active Substance: CARBOPLATIN
     Indication: Lung adenocarcinoma
     Dosage: MOST RECENT DOSE OF CARBOPLATIN: 04/APR/2022
     Route: 041
     Dates: start: 20220119, end: 20220404
  3. PEMETREXED DISODIUM HEMIPENTAHYDRATE [Suspect]
     Active Substance: PEMETREXED DISODIUM HEMIPENTAHYDRATE
     Indication: Lung adenocarcinoma
     Dosage: MOST RECENT DOSE OF PEMETREXED: 04/APR/2022
     Route: 041
     Dates: start: 20220119, end: 20220404

REACTIONS (3)
  - Angina pectoris [Unknown]
  - Gastric ulcer [Recovering/Resolving]
  - Aortic aneurysm [Not Recovered/Not Resolved]

NARRATIVE: CASE EVENT DATE: 20220411
